FAERS Safety Report 10033403 (Version 1)
Quarter: 2014Q1

REPORT INFORMATION
  Report Type: Spontaneous
  Country: GB (occurrence: GB)
  Receive Date: 20140325
  Receipt Date: 20140325
  Transmission Date: 20141002
  Serious: Yes (Life-Threatening, Hospitalization)
  Sender: FDA-Public Use
  Company Number: GB-ROCHE-1367522

PATIENT
  Age: 69 Year
  Sex: Male
  Weight: 68 kg

DRUGS (23)
  1. RITUXIMAB [Suspect]
     Indication: B-CELL LYMPHOMA
     Route: 065
     Dates: start: 20131106
  2. RITUXIMAB [Suspect]
     Route: 065
     Dates: start: 20131011
  3. RITUXIMAB [Suspect]
     Route: 065
     Dates: start: 20130916, end: 20131106
  4. CYCLOPHOSPHAMIDE [Suspect]
     Indication: B-CELL LYMPHOMA
     Route: 065
     Dates: start: 20130917, end: 20131106
  5. CYCLOPHOSPHAMIDE [Suspect]
     Route: 065
     Dates: start: 20131011
  6. CYCLOPHOSPHAMIDE [Suspect]
     Route: 065
     Dates: start: 20131106
  7. DOXORUBICIN [Suspect]
     Indication: B-CELL LYMPHOMA
     Route: 042
     Dates: start: 20130917, end: 20131106
  8. DOXORUBICIN [Suspect]
     Route: 042
     Dates: start: 20131011
  9. DOXORUBICIN [Suspect]
     Route: 042
     Dates: start: 20131106
  10. PREDNISOLONE [Suspect]
     Indication: B-CELL LYMPHOMA
     Route: 065
     Dates: start: 20130917, end: 20131110
  11. PREDNISOLONE [Suspect]
     Route: 065
     Dates: start: 20131015
  12. PREDNISOLONE [Suspect]
     Route: 065
     Dates: start: 20131110
  13. VELCADE [Suspect]
     Indication: B-CELL LYMPHOMA
     Route: 065
     Dates: start: 20131011, end: 20131113
  14. VINCRISTINE [Suspect]
     Indication: B-CELL LYMPHOMA
     Route: 065
     Dates: start: 20130917, end: 20131106
  15. VINCRISTINE [Suspect]
     Route: 065
     Dates: start: 20131011
  16. VINCRISTINE [Suspect]
     Route: 065
     Dates: start: 20131106
  17. CHLORPHENAMINE [Concomitant]
     Route: 042
     Dates: start: 20130916, end: 20130916
  18. DOMPERIDONE [Concomitant]
     Route: 065
     Dates: start: 20131013, end: 20131015
  19. HYDROCORTISONE [Concomitant]
     Route: 065
     Dates: start: 20130916, end: 20130916
  20. LENOGRASTIM [Concomitant]
     Route: 065
     Dates: start: 20131018
  21. OMEPRAZOLE [Concomitant]
     Route: 065
     Dates: start: 20131011, end: 20131015
  22. ONDANSETRON [Concomitant]
     Route: 065
     Dates: start: 20131011, end: 20131018
  23. PARACETAMOL [Concomitant]
     Route: 065
     Dates: start: 20130916, end: 20130916

REACTIONS (6)
  - Anaemia [Not Recovered/Not Resolved]
  - Malaise [Recovered/Resolved]
  - Pyrexia [Recovered/Resolved]
  - Hypophosphataemia [Recovered/Resolved]
  - Infection [Not Recovered/Not Resolved]
  - Neutropenic sepsis [Recovered/Resolved]
